FAERS Safety Report 5817454-6 (Version None)
Quarter: 2008Q3

REPORT INFORMATION
  Report Type: 
  Country: None (occurrence: None)
  Receive Date: 20080715
  Receipt Date: 20080708
  Transmission Date: 20090109
  Serious: Yes (Death)
  Sender: FDA-Public Use
  Company Number: 2008US000204

PATIENT
  Age: 55 Year
  Sex: Male
  Weight: 52 kg

DRUGS (12)
  1. AMBISOME [Suspect]
     Indication: BRONCHOPULMONARY ASPERGILLOSIS
     Dosage: 250 MG, UID/QD, IV NOS
     Route: 042
     Dates: start: 20071117, end: 20071121
  2. FUNGUARD (MICAFUNGIN SODIUM) [Concomitant]
  3. PROGRAF [Concomitant]
  4. AZACTAM [Concomitant]
  5. BACTRIM [Concomitant]
  6. ACICLOVIR (ACICLOVIR SODIUM) [Concomitant]
  7. FOSCAVIR [Concomitant]
  8. VANCOMYCIN HYDROCHLORIDE [Concomitant]
  9. SOLU-MEDROL [Concomitant]
  10. NEUPOGEN [Concomitant]
  11. VFEND [Concomitant]
  12. GANCICLOVIR [Concomitant]

REACTIONS (15)
  - ALANINE AMINOTRANSFERASE INCREASED [None]
  - BLOOD BILIRUBIN INCREASED [None]
  - BLOOD POTASSIUM INCREASED [None]
  - BLOOD PRESSURE DECREASED [None]
  - HAEMATOCRIT DECREASED [None]
  - HAEMODIALYSIS [None]
  - HAEMOGLOBIN DECREASED [None]
  - METABOLIC ACIDOSIS [None]
  - MULTI-ORGAN FAILURE [None]
  - PLATELET COUNT DECREASED [None]
  - PNEUMONIA [None]
  - RED BLOOD CELL COUNT DECREASED [None]
  - RENAL FAILURE [None]
  - RESPIRATORY FAILURE [None]
  - WHITE BLOOD CELL COUNT DECREASED [None]
